FAERS Safety Report 19184750 (Version 1)
Quarter: 2021Q2

REPORT INFORMATION
  Report Type: Spontaneous
  Country: GR (occurrence: GR)
  Receive Date: 20210427
  Receipt Date: 20210427
  Transmission Date: 20210717
  Serious: Yes (Other)
  Sender: FDA-Public Use
  Company Number: GR-PFIZER INC-2021416565

PATIENT
  Age: 66 Year
  Sex: Male

DRUGS (1)
  1. VIBRAMYCIN [Suspect]
     Active Substance: DOXYCYCLINE
     Indication: LYMPHOEDEMA
     Dosage: UNK

REACTIONS (3)
  - Off label use [Unknown]
  - Urinary retention [Unknown]
  - Wound secretion [Unknown]
